FAERS Safety Report 7545353-0 (Version None)
Quarter: 2011Q2

REPORT INFORMATION
  Report Type: 
  Country: None (occurrence: None)
  Receive Date: 20110613
  Receipt Date: 20110613
  Transmission Date: 20111010
  Serious: No
  Sender: FDA-Public Use
  Company Number: None

PATIENT
  Age: 22 Year
  Sex: Female
  Weight: 68.9467 kg

DRUGS (1)
  1. COMBIVIR [Suspect]
     Dosage: 2 A DAY EVERY 12 HRS

REACTIONS (4)
  - SKIN ODOUR ABNORMAL [None]
  - DYSGEUSIA [None]
  - HYPOAESTHESIA [None]
  - VAGINAL DISCHARGE [None]
